FAERS Safety Report 18146073 (Version 1)
Quarter: 2020Q3

REPORT INFORMATION
  Report Type: Spontaneous
  Country: US (occurrence: US)
  Receive Date: 20200813
  Receipt Date: 20200813
  Transmission Date: 20201103
  Serious: Yes (Life-Threatening, Hospitalization)
  Sender: FDA-Public Use
  Company Number: US-MYLANLABS-2020M1070899

PATIENT
  Age: 67 Year
  Sex: Female

DRUGS (22)
  1. TENECTEPLASE [Concomitant]
     Active Substance: TENECTEPLASE
     Indication: DEEP VEIN THROMBOSIS
  2. NITROGLYCERIN. [Concomitant]
     Active Substance: NITROGLYCERIN
     Indication: ACUTE MYOCARDIAL INFARCTION
     Dosage: 1 INCH OF 2% NITROGLYCERIN PASTE
     Route: 065
  3. ATORVASTATIN [Concomitant]
     Active Substance: ATORVASTATIN
     Indication: DEEP VEIN THROMBOSIS
     Dosage: 80 MILLIGRAM, QD
     Route: 065
  4. APIXABAN [Suspect]
     Active Substance: APIXABAN
     Indication: HEPARIN-INDUCED THROMBOCYTOPENIA
  5. HYDROMORPHONE [Concomitant]
     Active Substance: HYDROMORPHONE
     Indication: ANALGESIC THERAPY
     Dosage: AS NEEDED
     Route: 065
  6. ENOXAPARIN [Concomitant]
     Active Substance: ENOXAPARIN
     Indication: PROPHYLAXIS
     Dosage: 40 MILLIGRAM, QD(STARTED 1 DAY AFTER THE OPERATION
     Route: 058
  7. ASPIRIN                            /00002701/ [Concomitant]
     Active Substance: ASPIRIN
     Indication: PERIPHERAL ARTERY THROMBOSIS
     Dosage: 81 MILLIGRAM, QD
     Route: 048
  8. NITROGLYCERIN. [Concomitant]
     Active Substance: NITROGLYCERIN
     Indication: PERIPHERAL ARTERY THROMBOSIS
  9. TENECTEPLASE [Concomitant]
     Active Substance: TENECTEPLASE
     Indication: PERIPHERAL ARTERY THROMBOSIS
  10. ARGATROBAN. [Concomitant]
     Active Substance: ARGATROBAN
     Indication: ANTICOAGULANT THERAPY
     Dosage: 2 MICROGRAM/KILOGRAM, QMINUTE
     Route: 042
  11. METOPROLOL. [Concomitant]
     Active Substance: METOPROLOL
     Indication: ACUTE MYOCARDIAL INFARCTION
     Dosage: 25 MILLIGRAM, BID
     Route: 065
  12. METOPROLOL. [Concomitant]
     Active Substance: METOPROLOL
     Indication: PERIPHERAL ARTERY THROMBOSIS
  13. ATORVASTATIN [Concomitant]
     Active Substance: ATORVASTATIN
     Indication: PERIPHERAL ARTERY THROMBOSIS
  14. HEPARIN [Suspect]
     Active Substance: HEPARIN SODIUM
     Dosage: 12 INTERNATIONAL UNIT/KILOGRAM, QH
     Route: 042
  15. ATORVASTATIN [Concomitant]
     Active Substance: ATORVASTATIN
     Indication: ACUTE MYOCARDIAL INFARCTION
  16. HEPARIN [Suspect]
     Active Substance: HEPARIN SODIUM
     Indication: ANTICOAGULANT THERAPY
     Dosage: 4000 INTERNATIONAL UNIT
     Route: 040
  17. ASPIRIN                            /00002701/ [Concomitant]
     Active Substance: ASPIRIN
     Indication: ACUTE MYOCARDIAL INFARCTION
     Dosage: 325 MILLIGRAM
     Route: 048
  18. ASPIRIN                            /00002701/ [Concomitant]
     Active Substance: ASPIRIN
     Indication: DEEP VEIN THROMBOSIS
  19. TENECTEPLASE [Concomitant]
     Active Substance: TENECTEPLASE
     Indication: ACUTE MYOCARDIAL INFARCTION
     Dosage: 50 MILLIGRAM SINGLE BOLUS
     Route: 040
  20. METOPROLOL. [Concomitant]
     Active Substance: METOPROLOL
     Indication: DEEP VEIN THROMBOSIS
  21. APIXABAN [Suspect]
     Active Substance: APIXABAN
     Indication: ANTICOAGULANT THERAPY
     Dosage: 10 MILLIGRAM, BID
     Route: 048
  22. NITROGLYCERIN. [Concomitant]
     Active Substance: NITROGLYCERIN
     Indication: DEEP VEIN THROMBOSIS

REACTIONS (3)
  - Thrombocytopenia [Recovered/Resolved]
  - Off label use [Unknown]
  - Embolism arterial [Recovered/Resolved]
